FAERS Safety Report 10419739 (Version 1)
Quarter: 2014Q2

REPORT INFORMATION
  Report Type: Spontaneous
  Country: US (occurrence: None)
  Receive Date: 20140625
  Receipt Date: 20140625
  Transmission Date: 20141212
  Serious: No
  Sender: FDA-Public Use
  Company Number: A-US2014-94902

PATIENT
  Age: 75 Year
  Sex: Female

DRUGS (3)
  1. OPSUMIT (MACITENTAN) [Suspect]
     Indication: PULMONARY ARTERIAL HYPERTENSION
     Route: 048
     Dates: start: 20131110
  2. RIOCIGUAT (RIOCIGUAT) [Concomitant]
  3. TYVASO (TREPROSTINE SODIUM) [Concomitant]

REACTIONS (5)
  - Pneumonia [None]
  - Herpes zoster [None]
  - Influenza [None]
  - Dizziness [None]
  - Chest pain [None]
